FAERS Safety Report 5742141-2 (Version None)
Quarter: 2008Q2

REPORT INFORMATION
  Report Type: 
  Country: None (occurrence: None)
  Receive Date: 20080519
  Receipt Date: 20080514
  Transmission Date: 20081010
  Serious: Yes (Hospitalization)
  Sender: FDA-Public Use
  Company Number: US-BRISTOL-MYERS SQUIBB COMPANY-13923693

PATIENT
  Age: 60 Year
  Sex: Female
  Weight: 89 kg

DRUGS (14)
  1. PRAVASTATIN SODIUM [Suspect]
     Indication: HYPERLIPIDAEMIA
     Route: 048
     Dates: start: 20070705, end: 20070911
  2. EFFEXOR XR [Concomitant]
     Indication: DEPRESSION
     Dates: start: 20040101
  3. AMBIEN CR [Concomitant]
     Indication: INSOMNIA
     Dates: start: 20060517
  4. FLONASE [Concomitant]
     Indication: HYPERSENSITIVITY
     Dates: start: 20051201
  5. TOPROL-XL [Concomitant]
     Indication: HYPERTENSION
     Dates: start: 20050119
  6. KLONOPIN [Concomitant]
     Indication: ANXIETY
     Dates: start: 20041119
  7. NEXIUM [Concomitant]
     Indication: GASTROOESOPHAGEAL REFLUX DISEASE
     Dates: start: 20040101
  8. BONIVA [Concomitant]
     Indication: OSTEOPENIA
     Dates: start: 20070101
  9. TOPAMAX [Concomitant]
     Indication: MIGRAINE
     Dates: start: 20070730
  10. ASCORBIC ACID [Concomitant]
     Indication: ROUTINE HEALTH MAINTENANCE
     Dates: start: 20000101
  11. VITAMIN E [Concomitant]
     Indication: ROUTINE HEALTH MAINTENANCE
     Dosage: 1 DOSAGE FORM = 400 UNITS.
     Dates: start: 20000101
  12. CALCIUM [Concomitant]
     Indication: OSTEOPENIA
     Dates: start: 20050101
  13. LORA TAB [Concomitant]
     Indication: NECK PAIN
     Dosage: 1 DOSAGE FORM = 5/500 MG.
     Dates: start: 20070105
  14. IMITREX [Concomitant]
     Indication: MIGRAINE

REACTIONS (4)
  - FATIGUE [None]
  - HEADACHE [None]
  - SYNCOPE [None]
  - VERTIGO [None]
